FAERS Safety Report 7389231-9 (Version None)
Quarter: 2011Q2

REPORT INFORMATION
  Report Type: 
  Country: None (occurrence: None)
  Receive Date: 20110401
  Receipt Date: 20110321
  Transmission Date: 20111010
  Serious: Yes (Hospitalization, Other)
  Sender: FDA-Public Use
  Company Number: US-BAYER-2011-021104

PATIENT
  Age: 50 Year
  Sex: Female

DRUGS (6)
  1. IBUPROFEN [Suspect]
     Dosage: UNK
     Dates: start: 19900101
  2. CIMCIFUGA RHIZOME [Suspect]
     Indication: MENOPAUSAL SYMPTOMS
     Dosage: DAILY DOSE 500 MG
  3. ADVIL LIQUI-GELS [Suspect]
  4. VALACICLOVIR [Suspect]
     Indication: GENITAL HERPES
  5. ERYTHROMYCIN [Suspect]
     Dosage: UNK
  6. PARACETAMOL + PSEUDOEPHEDRINE [Suspect]

REACTIONS (5)
  - ANAEMIA [None]
  - HEPATITIS ACUTE [None]
  - COAGULOPATHY [None]
  - ENCEPHALOPATHY [None]
  - ACUTE HEPATIC FAILURE [None]
